FAERS Safety Report 9189795 (Version 4)
Quarter: 2013Q2

REPORT INFORMATION
  Report Type: Spontaneous
  Country: JP (occurrence: JP)
  Receive Date: 20130326
  Receipt Date: 20130412
  Transmission Date: 20140414
  Serious: Yes (Other)
  Sender: FDA-Public Use
  Company Number: JP-PFIZER INC-2013096130

PATIENT
  Age: 22 Month
  Sex: Female
  Weight: 10 kg

DRUGS (11)
  1. FOSPHENYTOIN SODIUM [Suspect]
     Indication: CONVULSION
     Dosage: 22.5 MG/KG/DAY
     Route: 042
     Dates: start: 20130314, end: 20130314
  2. FOSPHENYTOIN SODIUM [Suspect]
     Indication: PROPHYLAXIS
     Dosage: 7.5 MG/KG/DAY
     Route: 042
     Dates: start: 20130315, end: 20130317
  3. THIOPENTAL SODIUM [Suspect]
     Indication: CONVULSION
     Dosage: 2 MG/KG
     Route: 042
     Dates: start: 20130314, end: 20130316
  4. METHYLPREDNISOLONE [Concomitant]
     Indication: ENCEPHALOPATHY
     Dosage: 30 MG/KG
     Route: 042
     Dates: start: 20130314, end: 20130316
  5. IMMUNE SERUM GLOBULIN [Concomitant]
     Indication: ENCEPHALOPATHY
     Dosage: 1 G/DAY
     Route: 042
     Dates: start: 20130314, end: 20130315
  6. MANNITOL [Concomitant]
     Indication: ENCEPHALOPATHY
     Dosage: 2 G/KG
     Route: 042
     Dates: start: 20130314, end: 20130317
  7. ACICLOVIR [Concomitant]
     Indication: ENCEPHALOPATHY
     Dosage: 30 MG/KG
     Route: 042
     Dates: start: 20130314, end: 20130318
  8. CEFOTAXIME [Concomitant]
     Indication: ENCEPHALOPATHY
     Dosage: 360 MG/KG
     Route: 042
     Dates: start: 20130314
  9. OMEPRAL [Concomitant]
     Indication: PROPHYLAXIS AGAINST GASTROINTESTINAL ULCER
     Dosage: 0.5 MG/KG
     Route: 042
     Dates: start: 20130314, end: 20130316
  10. HEPARIN SODIUM [Concomitant]
     Indication: THROMBOSIS
     Dosage: 10 UNIT/KG CONTINUOUS I.V. INFUSION
     Route: 042
     Dates: start: 20130314, end: 20130316
  11. AMPICILLIN SODIUM W/SULBACTAM SODIUM [Concomitant]
     Indication: PNEUMONIA
     Dosage: 300 MG/KG
     Route: 042
     Dates: start: 20130314, end: 20130318

REACTIONS (3)
  - Respiratory depression [Recovered/Resolved]
  - Pneumonia aspiration [Unknown]
  - Dyskinesia [Unknown]
